FAERS Safety Report 20893572 (Version 1)
Quarter: 2022Q2

REPORT INFORMATION
  Report Type: Spontaneous
  Country: SI (occurrence: SI)
  Receive Date: 20220531
  Receipt Date: 20220531
  Transmission Date: 20220721
  Serious: Yes (Death, Other)
  Sender: FDA-Public Use
  Company Number: SI-JNJFOC-20220541244

PATIENT
  Age: 57 Year
  Sex: Male

DRUGS (3)
  1. DEXAMETHASONE [Suspect]
     Active Substance: DEXAMETHASONE
     Indication: Primary amyloidosis
     Route: 065
     Dates: start: 202004
  2. LENALIDOMIDE [Suspect]
     Active Substance: LENALIDOMIDE
     Indication: Primary amyloidosis
     Route: 065
     Dates: start: 202004
  3. DARZALEX [Suspect]
     Active Substance: DARATUMUMAB
     Indication: Primary amyloidosis
     Route: 065
     Dates: start: 202004

REACTIONS (6)
  - Renal failure [Fatal]
  - Prostatitis [Fatal]
  - Aggression [Fatal]
  - Product use in unapproved indication [Fatal]
  - Off label use [Fatal]
  - Urosepsis [Fatal]

NARRATIVE: CASE EVENT DATE: 20200701
